FAERS Safety Report 4816250-6 (Version None)
Quarter: 2005Q4

REPORT INFORMATION
  Report Type: 
  Country: None (occurrence: None)
  Receive Date: 20051028
  Receipt Date: 20051018
  Transmission Date: 20060501
  Serious: Yes (Hospitalization)
  Sender: FDA-Public Use
  Company Number: 2005RR-00955

PATIENT
  Sex: Male

DRUGS (6)
  1. GABAPENTIN [Suspect]
     Dosage: 9000 MG, QD
  2. LYRICA [Suspect]
     Indication: PAIN
  3. TRAMADOL HCL [Suspect]
  4. IBUPROFEN [Suspect]
  5. TEGRETOL [Suspect]
  6. MORPHINE [Concomitant]

REACTIONS (1)
  - MULTIPLE DRUG OVERDOSE [None]
